FAERS Safety Report 6614527-5 (Version None)
Quarter: 2010Q1

REPORT INFORMATION
  Report Type: 
  Country: None (occurrence: None)
  Receive Date: 20100304
  Receipt Date: 20100223
  Transmission Date: 20100710
  Serious: Yes (Other)
  Sender: FDA-Public Use
  Company Number: US-BAXTER-2010BH004574

PATIENT

DRUGS (1)
  1. DOBUTAMINE HYDROCHLORIDE [Suspect]
     Indication: CARDIAC STRESS TEST
     Route: 065
     Dates: start: 20100201, end: 20100201

REACTIONS (2)
  - CHILLS [None]
  - CONVULSION [None]
